FAERS Safety Report 5717312-1 (Version None)
Quarter: 2008Q2

REPORT INFORMATION
  Report Type: 
  Country: None (occurrence: None)
  Receive Date: 20080424
  Receipt Date: 20080424
  Transmission Date: 20081010
  Serious: Yes (Other)
  Sender: FDA-Public Use
  Company Number: None

PATIENT
  Age: 27 Year
  Sex: Female
  Weight: 104.3273 kg

DRUGS (1)
  1. VERAMYST [Suspect]
     Indication: HYPERSENSITIVITY
     Dosage: SET DOSE AMOUNT ONCE DAILY NASAL
     Route: 045
     Dates: start: 20080215, end: 20080402

REACTIONS (3)
  - LACERATION [None]
  - NASAL DISORDER [None]
  - PAIN [None]
